FAERS Safety Report 10667376 (Version 1)
Quarter: 2014Q4

REPORT INFORMATION
  Report Type: Spontaneous
  Country: US (occurrence: US)
  Receive Date: 20141222
  Receipt Date: 20141222
  Transmission Date: 20150529
  Serious: Yes (Life-Threatening, Hospitalization, Other)
  Sender: FDA-Public Use
  Company Number: US-JNJFOC-20141213190

PATIENT
  Age: 23 Year
  Sex: Male

DRUGS (1)
  1. DIPHENHYDRAMINE HYDROCHLORIDE. [Suspect]
     Active Substance: DIPHENHYDRAMINE HYDROCHLORIDE
     Indication: PRODUCT USED FOR UNKNOWN INDICATION
     Dosage: 2000-2500 MG OF DIPHENHYDRAMINE
     Route: 048

REACTIONS (10)
  - Hypotension [Unknown]
  - Generalised tonic-clonic seizure [Unknown]
  - Tachycardia [Recovered/Resolved]
  - Defect conduction intraventricular [Unknown]
  - Toxicity to various agents [Unknown]
  - Ventricular extrasystoles [Unknown]
  - Depressed level of consciousness [Unknown]
  - Dry skin [Unknown]
  - Overdose [Unknown]
  - Lipase increased [Unknown]
